FAERS Safety Report 19419189 (Version 1)
Quarter: 2021Q2

REPORT INFORMATION
  Report Type: Spontaneous
  Country: US (occurrence: US)
  Receive Date: 20210615
  Receipt Date: 20210615
  Transmission Date: 20210717
  Serious: Yes (Other)
  Sender: FDA-Public Use
  Company Number: US-PFIZER INC-2021634681

PATIENT
  Age: 65 Year
  Sex: Female

DRUGS (2)
  1. IBRANCE [Suspect]
     Active Substance: PALBOCICLIB
     Dosage: 125 MG
  2. FASLODEX [Suspect]
     Active Substance: FULVESTRANT

REACTIONS (4)
  - Crying [Unknown]
  - Hypersensitivity [Unknown]
  - Loss of consciousness [Unknown]
  - Malaise [Unknown]
